FAERS Safety Report 6326986-6 (Version None)
Quarter: 2009Q3

REPORT INFORMATION
  Report Type: 
  Country: None (occurrence: None)
  Receive Date: 20090825
  Receipt Date: 20090819
  Transmission Date: 20100115
  Serious: Yes (Hospitalization)
  Sender: FDA-Public Use
  Company Number: JP-AVENTIS-200818849GDDC

PATIENT
  Age: 51 Year
  Sex: Female

DRUGS (14)
  1. ARAVA [Suspect]
     Route: 048
     Dates: start: 20080602, end: 20080604
  2. ARAVA [Suspect]
     Route: 048
     Dates: start: 20080605, end: 20080612
  3. LANSOPRAZOLE [Suspect]
     Indication: PROPHYLAXIS AGAINST GASTROINTESTINAL ULCER
     Route: 048
     Dates: start: 20080207, end: 20080617
  4. ASCORBIC ACID (VIT C), INCL COMBINATIONS [Concomitant]
     Indication: VITAMIN SUPPLEMENTATION
     Route: 048
  5. FOSAMAC [Concomitant]
     Indication: PROPHYLAXIS
     Route: 048
  6. LOXOPROFEN SODIUM [Concomitant]
     Indication: RHEUMATOID ARTHRITIS
     Route: 048
     Dates: start: 20080501
  7. JUVELA N [Concomitant]
     Indication: RHEUMATOID ARTHRITIS
     Route: 048
     Dates: start: 20080205
  8. COMBINATIONS OF VITAMINS [Concomitant]
     Indication: VITAMIN SUPPLEMENTATION
     Dosage: DOSE QUANTITY: 1
     Route: 048
     Dates: start: 20040621
  9. PREDNISOLONE [Concomitant]
     Indication: RHEUMATOID ARTHRITIS
     Route: 048
     Dates: start: 20080501, end: 20080612
  10. PREDNISOLONE [Concomitant]
     Dosage: DOSE: 4 MG IN AM, 5 MG IN PM
     Route: 048
     Dates: start: 20080613, end: 20080613
  11. PREDNISOLONE [Concomitant]
     Route: 048
     Dates: start: 20080614
  12. ADOFEED [Concomitant]
     Indication: RHEUMATOID ARTHRITIS
     Route: 062
     Dates: start: 20080501
  13. METHOTREXATE [Concomitant]
  14. INFLIXIMAB [Concomitant]

REACTIONS (6)
  - DISSEMINATED INTRAVASCULAR COAGULATION [None]
  - DRUG HYPERSENSITIVITY [None]
  - LIVER DISORDER [None]
  - NAUSEA [None]
  - PLATELET COUNT DECREASED [None]
  - WHITE BLOOD CELL COUNT DECREASED [None]
